FAERS Safety Report 8912878 (Version 2)
Quarter: 2012Q4

REPORT INFORMATION
  Report Type: 
  Country: US (occurrence: US)
  Receive Date: 20121115
  Receipt Date: 20121205
  Transmission Date: 20130627
  Serious: Yes (Other)
  Sender: FDA-Public Use
  Company Number: US-ASTRAZENECA-2012SE84863

PATIENT
  Age: 58 Year
  Sex: Male

DRUGS (1)
  1. NEXIUM [Suspect]
     Route: 048

REACTIONS (6)
  - Oesophageal carcinoma [Unknown]
  - Myocardial infarction [Unknown]
  - Pancreatitis [Unknown]
  - Oesophageal disorder [Unknown]
  - Cardiac failure [Unknown]
  - Hypoacusis [Unknown]
